FAERS Safety Report 11326019 (Version 1)
Quarter: 2015Q3

REPORT INFORMATION
  Report Type: Spontaneous
  Country: US (occurrence: None)
  Receive Date: 20150729
  Receipt Date: 20150729
  Transmission Date: 20151125
  Serious: Yes (Other)
  Sender: FDA-Public Use
  Company Number: EY-BP-US-2015-106

PATIENT
  Sex: Male

DRUGS (2)
  1. SUBUTEX [Suspect]
     Active Substance: BUPRENORPHINE HYDROCHLORIDE
     Indication: PRODUCT USED FOR UNKNOWN INDICATION
     Dosage: 0.4 - 32 MG, UNKNOWN
  2. KRATOM (MITRAGYNA SPECIOSA LEAF) [Concomitant]

REACTIONS (4)
  - Drug dependence [None]
  - Intentional product misuse [None]
  - Incorrect route of drug administration [None]
  - Toxicity to various agents [None]
